FAERS Safety Report 7556525-3 (Version None)
Quarter: 2011Q2

REPORT INFORMATION
  Report Type: 
  Country: None (occurrence: None)
  Receive Date: 20110615
  Receipt Date: 20110615
  Transmission Date: 20111010
  Serious: Yes (Hospitalization)
  Sender: FDA-Public Use
  Company Number: None

PATIENT
  Age: 17 Year
  Sex: Female
  Weight: 38.5557 kg

DRUGS (1)
  1. EPINEPHRINE [Suspect]

REACTIONS (3)
  - MEDICATION ERROR [None]
  - ARRHYTHMIA [None]
  - INCORRECT DOSE ADMINISTERED [None]
